FAERS Safety Report 15326128 (Version 1)
Quarter: 2018Q3

REPORT INFORMATION
  Report Type: Report from Study
  Country: AU (occurrence: AU)
  Receive Date: 20180828
  Receipt Date: 20180828
  Transmission Date: 20181010
  Serious: Yes (Hospitalization, Other)
  Sender: FDA-Public Use
  Company Number: PHHY2018AU082684

PATIENT
  Age: 8 Year
  Sex: Female
  Weight: 22 kg

DRUGS (9)
  1. OXYCODONE [Concomitant]
     Active Substance: OXYCODONE
     Indication: PROCEDURAL PAIN
     Dosage: 2.25 TO 4.5 MG (AS REQUIRED)
     Route: 048
     Dates: start: 20180508
  2. DEXTROSE. [Concomitant]
     Active Substance: DEXTROSE
     Indication: PROPHYLAXIS
     Dosage: 35 ML, UNK
     Route: 042
     Dates: start: 20180531, end: 20180531
  3. VENETOCLAX. [Suspect]
     Active Substance: VENETOCLAX
     Dosage: 350 MG, QD (1 IN 1 DAY)
     Route: 048
     Dates: start: 20180601
  4. FERROUS FUMARATE [Concomitant]
     Active Substance: FERROUS FUMARATE
     Indication: MINERAL SUPPLEMENTATION
     Dosage: 1.3 MG, QD (1 IN 1 DAY)
     Route: 048
     Dates: start: 20180123
  5. VENETOCLAX. [Suspect]
     Active Substance: VENETOCLAX
     Indication: NEOPLASM MALIGNANT
     Dosage: 170 MG, QD (1 IN 1 DAY)
     Route: 048
     Dates: start: 20180531, end: 20180531
  6. NORMAL SALINE [Concomitant]
     Active Substance: SODIUM CHLORIDE
     Indication: PROPHYLAXIS
     Dosage: 35 ML, UNK
     Route: 042
     Dates: start: 20180531, end: 20180531
  7. TOPOTECAN HYDROCHLORIDE. [Suspect]
     Active Substance: TOPOTECAN HYDROCHLORIDE
     Indication: NEOPLASM MALIGNANT
     Route: 042
  8. CYCLOPHOSPHAMIDE. [Suspect]
     Active Substance: CYCLOPHOSPHAMIDE
     Indication: NEOPLASM MALIGNANT
     Route: 042
  9. ALLOPURINOL. [Concomitant]
     Active Substance: ALLOPURINOL
     Indication: PROPHYLAXIS
     Dosage: UNK
     Route: 042
     Dates: start: 20180531, end: 20180601

REACTIONS (12)
  - Heart rate increased [Unknown]
  - Cough [Unknown]
  - Abdominal pain [Unknown]
  - Headache [Unknown]
  - Pain in extremity [Unknown]
  - Malaise [Unknown]
  - Pyrexia [Unknown]
  - Blood pressure decreased [Unknown]
  - Febrile neutropenia [Not Recovered/Not Resolved]
  - Chills [Unknown]
  - Cytopenia [Unknown]
  - Diarrhoea [Unknown]

NARRATIVE: CASE EVENT DATE: 20180802
